FAERS Safety Report 5968812-0 (Version None)
Quarter: 2008Q4

REPORT INFORMATION
  Report Type: 
  Country: None (occurrence: None)
  Receive Date: 20081126
  Receipt Date: 20081117
  Transmission Date: 20090506
  Serious: Yes (Hospitalization)
  Sender: FDA-Public Use
  Company Number: FR-JNJFOC-20081104215

PATIENT
  Age: 57 Year
  Sex: Female

DRUGS (5)
  1. REMICADE [Suspect]
     Indication: RHEUMATOID ARTHRITIS
     Route: 042
  2. NOVATREX [Suspect]
     Indication: RHEUMATOID ARTHRITIS
     Route: 048
  3. ARAVA [Suspect]
     Indication: RHEUMATOID ARTHRITIS
     Route: 048
  4. ENBREL [Suspect]
     Indication: RHEUMATOID ARTHRITIS
     Route: 058
  5. HUMIRA [Suspect]
     Indication: RHEUMATOID ARTHRITIS
     Route: 058

REACTIONS (1)
  - RENAL CELL CARCINOMA [None]
